FAERS Safety Report 17631953 (Version 5)
Quarter: 2022Q1

REPORT INFORMATION
  Report Type: Report from Study
  Country: US (occurrence: US)
  Receive Date: 20200406
  Receipt Date: 20220210
  Transmission Date: 20220424
  Serious: No
  Sender: FDA-Public Use
  Company Number: US-FEDR-MF-001-1142002-20200220-0001SG

PATIENT
  Age: 61 Year
  Sex: Male
  Weight: 139 kg

DRUGS (1)
  1. FEDRATINIB [Suspect]
     Active Substance: FEDRATINIB
     Indication: Myelofibrosis
     Dosage: 400 MG X 1 X 1 DAYS
     Route: 048
     Dates: start: 20191205, end: 20210519

REACTIONS (1)
  - Vitamin B1 decreased [Recovered/Resolved]

NARRATIVE: CASE EVENT DATE: 20200130
